FAERS Safety Report 4263615-X (Version None)
Quarter: 2004Q1

REPORT INFORMATION
  Report Type: 
  Country: None (occurrence: None)
  Receive Date: 20040105
  Receipt Date: 20031225
  Transmission Date: 20041129
  Serious: Yes (Hospitalization)
  Sender: FDA-Public Use
  Company Number: US-BRISTOL-MYERS SQUIBB COMPANY-12465233

PATIENT
  Age: 72 Year
  Sex: Male

DRUGS (8)
  1. CISPLATIN [Suspect]
     Indication: SMALL CELL LUNG CANCER STAGE UNSPECIFIED
     Dosage: 1ST DOSE ON 06-OCT-03
     Route: 042
     Dates: start: 20031027, end: 20031027
  2. ETOPOSIDE [Suspect]
     Indication: SMALL CELL LUNG CANCER STAGE UNSPECIFIED
     Dosage: 1ST COURSE FROM 06- TO 08-OCT-03
     Route: 042
     Dates: start: 20031027, end: 20031029
  3. TOPOTECAN HCL [Suspect]
     Indication: SMALL CELL LUNG CANCER STAGE UNSPECIFIED
     Route: 048
     Dates: start: 20031118, end: 20031210
  4. RADIOTHERAPY [Suspect]
     Indication: SMALL CELL LUNG CANCER STAGE UNSPECIFIED
     Route: 061
     Dates: start: 20031118, end: 20031210
  5. METOCLOPRAMIDE HCL [Concomitant]
     Dates: start: 20031210, end: 20031212
  6. METOCLOPRAMIDE HCL [Concomitant]
     Dates: start: 20031210, end: 20031212
  7. SODIUM CHLORIDE [Concomitant]
     Dates: start: 20031210, end: 20031210
  8. MORPHINE SULFATE [Concomitant]
     Dates: start: 20031202, end: 20031203

REACTIONS (6)
  - BLOOD ALBUMIN DECREASED [None]
  - BLOOD POTASSIUM DECREASED [None]
  - DEHYDRATION [None]
  - DYSPHAGIA [None]
  - NAUSEA [None]
  - VOMITING [None]
